FAERS Safety Report 5364583-X (Version None)
Quarter: 2007Q2

REPORT INFORMATION
  Report Type: 
  Country: None (occurrence: None)
  Receive Date: 20070530
  Receipt Date: 20070120
  Transmission Date: 20071010
  Serious: No
  Sender: FDA-Public Use
  Company Number: 2007PV028717

PATIENT
  Age: 84 Year
  Sex: Female
  Weight: 69.8539 kg

DRUGS (4)
  1. BYETTA [Suspect]
     Indication: DIABETES MELLITUS
     Dosage: 5 MCG;BID;SC
     Route: 058
     Dates: start: 20061228
  2. BYETTA [Suspect]
  3. HUMULIN R [Concomitant]
  4. HUMULIN 70/30 [Concomitant]

REACTIONS (3)
  - MUSCLE TIGHTNESS [None]
  - TENSION [None]
  - VISUAL ACUITY REDUCED [None]
